FAERS Safety Report 21602907 (Version 1)
Quarter: 2022Q4

REPORT INFORMATION
  Report Type: Spontaneous
  Country: US (occurrence: US)
  Receive Date: 20221116
  Receipt Date: 20221116
  Transmission Date: 20230112
  Serious: No
  Sender: FDA-Public Use
  Company Number: US-OptiNose US, Inc-2022OPT000011

PATIENT
  Age: 70 Year
  Sex: Female

DRUGS (2)
  1. XHANCE [Suspect]
     Active Substance: FLUTICASONE PROPIONATE
     Indication: Nasal polyps
     Dosage: ONE SPRAY IN THE LEFT NOSTRIL EVERY MORNING AND ONE SPRAY IN THE RIGHT NOSTRIL EVERY EVENING
     Route: 045
     Dates: start: 202107
  2. XHANCE [Suspect]
     Active Substance: FLUTICASONE PROPIONATE
     Route: 045
     Dates: start: 202107

REACTIONS (4)
  - Vision blurred [Recovered/Resolved]
  - Metamorphopsia [Recovered/Resolved]
  - Eye swelling [Unknown]
  - Prescribed underdose [Not Recovered/Not Resolved]

NARRATIVE: CASE EVENT DATE: 20210101
